FAERS Safety Report 18442490 (Version 1)
Quarter: 2020Q4

REPORT INFORMATION
  Report Type: Other
  Country: GB (occurrence: GB)
  Receive Date: 20201029
  Receipt Date: 20201029
  Transmission Date: 20210114
  Serious: Yes (Life-Threatening)
  Sender: FDA-Public Use
  Company Number: GB-COVIS PHARMA B.V.-2020COV00505

PATIENT
  Age: 66 Year
  Sex: Male
  Weight: 58 kg

DRUGS (9)
  1. AMOXICILLIN. [Concomitant]
     Active Substance: AMOXICILLIN
  2. TRELEGY ELLIPTA [Concomitant]
     Active Substance: FLUTICASONE FUROATE\UMECLIDINIUM BROMIDE\VILANTEROL TRIFENATATE
  3. SALBUTAMOL [Concomitant]
     Active Substance: ALBUTEROL
  4. THIAMINE. [Concomitant]
     Active Substance: THIAMINE
  5. SERTRALINE [Concomitant]
     Active Substance: SERTRALINE HYDROCHLORIDE
  6. AMITRIPTYLINE [Concomitant]
     Active Substance: AMITRIPTYLINE
  7. QUININE SULFATE. [Concomitant]
     Active Substance: QUININE SULFATE
  8. CLARITHROMYCIN. [Concomitant]
     Active Substance: CLARITHROMYCIN
  9. OMEPRAZOLE MAGNESIUM. [Suspect]
     Active Substance: OMEPRAZOLE MAGNESIUM
     Dosage: 40 MG
     Route: 048
     Dates: end: 20200921

REACTIONS (2)
  - Atrial fibrillation [Unknown]
  - Hypomagnesaemia [Recovered/Resolved]
